FAERS Safety Report 9263437 (Version 1)
Quarter: 2013Q2

REPORT INFORMATION
  Report Type: Spontaneous
  Country: US (occurrence: US)
  Receive Date: 20130430
  Receipt Date: 20130430
  Transmission Date: 20140414
  Serious: No
  Sender: FDA-Public Use
  Company Number: US-ABBOTT-12P-163-0948992-00

PATIENT
  Age: 81 Year
  Sex: Female
  Weight: 47.22 kg

DRUGS (2)
  1. CREON DELAYED-RELEASE CAPSULE [Suspect]
     Indication: PANCREATIC INSUFFICIENCY
     Dosage: 6,000 USP UNITS OF LIPASE; 19,000 USP UNITS OF PROTEASE; 30,000 USP UNITS OF AMYLASE
     Dates: end: 20120614
  2. CREON DELAYED-RELEASE CAPSULE [Suspect]
     Dosage: 6,000 USP UNITS OF LIPASE; 19,000 USP UNITS OF PROTEASE; 30,000 USP UNITS OF AMYLASE
     Dates: start: 20120615

REACTIONS (1)
  - Diarrhoea [Not Recovered/Not Resolved]
